FAERS Safety Report 9204587 (Version 2)
Quarter: 2013Q2

REPORT INFORMATION
  Report Type: Spontaneous
  Country: US (occurrence: US)
  Receive Date: 20130402
  Receipt Date: 20130528
  Transmission Date: 20140414
  Serious: No
  Sender: FDA-Public Use
  Company Number: US-PFIZER INC-2013100909

PATIENT
  Age: 56 Year
  Sex: Female
  Weight: 52.2 kg

DRUGS (1)
  1. ESTRING [Suspect]
     Indication: VULVOVAGINAL DRYNESS
     Dosage: UNK
     Route: 067
     Dates: start: 20130321

REACTIONS (2)
  - Pain [Unknown]
  - Vulvovaginal discomfort [Recovered/Resolved]
